FAERS Safety Report 6100088-6 (Version None)
Quarter: 2009Q1

REPORT INFORMATION
  Report Type: 
  Country: None (occurrence: None)
  Receive Date: 20090303
  Receipt Date: 20090225
  Transmission Date: 20090719
  Serious: Yes (Hospitalization)
  Sender: FDA-Public Use
  Company Number: B0562450A

PATIENT
  Age: 33 Year
  Sex: Male

DRUGS (6)
  1. LAMIVUDINE [Suspect]
     Indication: HIV INFECTION
     Dosage: 150MG TWICE PER DAY
  2. ZIDOVUDINE [Suspect]
     Indication: HIV INFECTION
     Dosage: 300MG TWICE PER DAY
  3. EFAVIRENZ [Suspect]
     Indication: HIV INFECTION
     Dosage: 600MG AT NIGHT
  4. ISONIAZID [Concomitant]
     Indication: TUBERCULOSIS
     Dosage: 300MG PER DAY
  5. RIFAMPICIN [Concomitant]
     Indication: TUBERCULOSIS
     Dosage: 450MG PER DAY
  6. PYRAZINAMIDE [Concomitant]
     Indication: TUBERCULOSIS
     Dosage: 1500MG PER DAY

REACTIONS (12)
  - ABDOMINAL PAIN [None]
  - ANOREXIA [None]
  - ASTHENIA [None]
  - CARDIOMEGALY [None]
  - CHEILITIS [None]
  - DIARRHOEA [None]
  - IMMUNE RECONSTITUTION SYNDROME [None]
  - ORAL CANDIDIASIS [None]
  - PYREXIA [None]
  - TACHYCARDIA [None]
  - TACHYPNOEA [None]
  - VOMITING [None]
